FAERS Safety Report 20574157 (Version 1)
Quarter: 2022Q1

REPORT INFORMATION
  Report Type: Spontaneous
  Country: TW (occurrence: TW)
  Receive Date: 20220309
  Receipt Date: 20220309
  Transmission Date: 20220423
  Serious: Yes (Other)
  Sender: FDA-Public Use
  Company Number: TW-PFIZER INC-202200327905

PATIENT
  Age: 80 Year

DRUGS (1)
  1. XELJANZ XR [Suspect]
     Active Substance: TOFACITINIB CITRATE
     Indication: Rheumatoid arthritis
     Dosage: 11 MG, QD
     Route: 048
     Dates: start: 201912, end: 20220225

REACTIONS (2)
  - Lip and/or oral cavity cancer [Not Recovered/Not Resolved]
  - Mouth swelling [Not Recovered/Not Resolved]
